FAERS Safety Report 8919381 (Version 1)
Quarter: 2012Q4

REPORT INFORMATION
  Report Type: 
  Country: US (occurrence: US)
  Receive Date: 20121121
  Receipt Date: 20121121
  Transmission Date: 20130627
  Serious: Yes (Other)
  Sender: FDA-Public Use
  Company Number: US-PFIZER INC-2012288279

PATIENT
  Age: 66 Year
  Sex: Male
  Weight: 66 kg

DRUGS (3)
  1. CELEBREX [Suspect]
     Indication: PAIN
     Dosage: 200 mg, 2x/day
     Route: 048
     Dates: start: 20121020, end: 20121106
  2. IPRIVASK [Concomitant]
     Dosage: 20 mg, UNK
  3. PRILOSEC [Concomitant]
     Dosage: 20 mg, 1x/day

REACTIONS (5)
  - Rectal haemorrhage [Recovered/Resolved]
  - Rash [Unknown]
  - Dysphagia [Unknown]
  - Dry eye [Unknown]
  - Dry throat [Unknown]
